FAERS Safety Report 11910835 (Version 3)
Quarter: 2016Q1

REPORT INFORMATION
  Report Type: Spontaneous
  Country: US (occurrence: US)
  Receive Date: 20160112
  Receipt Date: 20160211
  Transmission Date: 20160526
  Serious: No
  Sender: FDA-Public Use
  Company Number: US-ACTELION PHARMACEUTICALS US, INC.-A-US2016-129545

PATIENT
  Age: 61 Year
  Sex: Female

DRUGS (1)
  1. VELETRI [Suspect]
     Active Substance: EPOPROSTENOL
     Indication: PULMONARY HYPERTENSION
     Dosage: 5 NG/KG, PER MIN
     Route: 042
     Dates: start: 20151111

REACTIONS (13)
  - Dyspnoea [Unknown]
  - Pain in extremity [Unknown]
  - Vomiting [Recovered/Resolved]
  - Catheter site erythema [Unknown]
  - Back pain [Unknown]
  - Syncope [Unknown]
  - Nausea [Recovered/Resolved]
  - Catheter site pruritus [Unknown]
  - Hypotension [Recovered/Resolved]
  - Chest pain [Unknown]
  - Product preparation error [Unknown]
  - Hypersensitivity [Unknown]
  - Flushing [Recovered/Resolved]
